FAERS Safety Report 20517583 (Version 1)
Quarter: 2022Q1

REPORT INFORMATION
  Report Type: Spontaneous
  Country: US (occurrence: None)
  Receive Date: 20220224
  Receipt Date: 20220224
  Transmission Date: 20220423
  Serious: Yes (Life-Threatening, Hospitalization, Disabling)
  Sender: FDA-Public Use
  Company Number: None

PATIENT
  Age: 48 Year
  Sex: Male
  Weight: 85.5 kg

DRUGS (9)
  1. BRUT CLASSIC ANTI-PERSPIRANT AND DEODORANT [Suspect]
     Active Substance: ALUMINUM ZIRCONIUM TETRACHLOROHYDREX GLY
     Indication: Hyperhidrosis
     Dosage: DAILY TOPICAL?
     Route: 061
  2. BRUT CLASSIC ANTI-PERSPIRANT AND DEODORANT [Suspect]
     Active Substance: ALUMINUM ZIRCONIUM TETRACHLOROHYDREX GLY
     Indication: Hyperhidrosis
     Dosage: TOPICAL
     Route: 061
  3. UNSPECIFIED INGREDIENT [Concomitant]
     Active Substance: UNSPECIFIED INGREDIENT
  4. ACYCLOVIR [Concomitant]
     Active Substance: ACYCLOVIR
  5. LEVOFLOXACIN [Concomitant]
     Active Substance: LEVOFLOXACIN
  6. FLUCONAZOLE [Concomitant]
     Active Substance: FLUCONAZOLE
  7. TRAMADOL [Concomitant]
     Active Substance: TRAMADOL
  8. ONDANSETRON [Concomitant]
     Active Substance: ONDANSETRON
  9. MULTI-VITAMIN [Concomitant]
     Active Substance: .ALPHA.-TOCOPHEROL ACETATE, DL-\ASCORBIC ACID\CYANOCOBALAMIN\FLUORIDE ION\FOLIC ACID\NIACIN\PYRIDOXI

REACTIONS (5)
  - Acute myeloid leukaemia [None]
  - Recalled product administered [None]
  - Device defective [None]
  - Exposure to toxic agent [None]
  - Product contamination chemical [None]

NARRATIVE: CASE EVENT DATE: 20211214
